FAERS Safety Report 11086656 (Version 1)
Quarter: 2015Q2

REPORT INFORMATION
  Report Type: Spontaneous
  Country: US (occurrence: None)
  Receive Date: 20150430
  Receipt Date: 20150430
  Transmission Date: 20150821
  Serious: Yes (Death)
  Sender: FDA-Public Use
  Company Number: 15US000396

PATIENT
  Age: 48 Year
  Sex: Male
  Weight: 88.4 kg

DRUGS (1)
  1. HALLS HONEY LEMON [Suspect]
     Active Substance: MENTHOL
     Indication: COUGH
     Route: 048

REACTIONS (2)
  - Completed suicide [None]
  - Gun shot wound [None]

NARRATIVE: CASE EVENT DATE: 20150203
